FAERS Safety Report 10393715 (Version 1)
Quarter: 2014Q3

REPORT INFORMATION
  Report Type: Spontaneous
  Country: FR (occurrence: FR)
  Receive Date: 20140819
  Receipt Date: 20140819
  Transmission Date: 20150326
  Serious: Yes (Hospitalization)
  Sender: FDA-Public Use
  Company Number: FR-PFIZER INC-2014224925

PATIENT
  Age: 77 Year
  Sex: Female

DRUGS (10)
  1. TEMESTA [Concomitant]
     Active Substance: LORAZEPAM
     Dosage: 2.5
  2. CORTANCYL [Concomitant]
     Active Substance: PREDNISONE
     Dosage: 20
  3. PARACETAMOL [Interacting]
     Active Substance: ACETAMINOPHEN
     Dosage: AS NEEDED
     Route: 048
  4. LAROXYL [Concomitant]
     Active Substance: AMITRIPTYLINE
     Dosage: 25
  5. HUMALOG [Concomitant]
     Active Substance: INSULIN LISPRO
     Dosage: UNK
  6. PREVISCAN [Suspect]
     Active Substance: FLUINDIONE
     Dosage: 10 MG, 1X/DAY
     Route: 048
  7. METFORMIN [Concomitant]
     Active Substance: METFORMIN HYDROCHLORIDE
     Dosage: 500
  8. TAHOR [Suspect]
     Active Substance: ATORVASTATIN CALCIUM
     Dosage: 10 MG FILM-COATED TABLET
     Route: 048
  9. AMLOR [Concomitant]
     Active Substance: AMLODIPINE BESYLATE
     Dosage: 10
  10. LANTUS [Concomitant]
     Active Substance: INSULIN GLARGINE
     Dosage: UNK

REACTIONS (6)
  - Pseudomonas infection [Unknown]
  - Encephalitis [Unknown]
  - Septic shock [Unknown]
  - International normalised ratio increased [Unknown]
  - Haematoma [Recovering/Resolving]
  - Drug interaction [Unknown]

NARRATIVE: CASE EVENT DATE: 201407
